FAERS Safety Report 7153933-X (Version None)
Quarter: 2010Q4

REPORT INFORMATION
  Report Type: 
  Country: None (occurrence: None)
  Receive Date: 20101213
  Receipt Date: 20101130
  Transmission Date: 20110411
  Serious: Yes (Other)
  Sender: FDA-Public Use
  Company Number: PHHY2010SI82418

PATIENT
  Sex: Male
  Weight: 75 kg

DRUGS (6)
  1. ZOLEDRONATE T29581+ [Suspect]
     Indication: BONE DISORDER
     Dosage: 4MG/5ML/28DAYS
     Route: 042
     Dates: start: 20080924
  2. ZALDIAR [Concomitant]
  3. NAKLOFEN [Concomitant]
  4. CASODEX [Concomitant]
  5. PERINDOPRIL [Concomitant]
  6. TRIPTORELIN [Concomitant]

REACTIONS (1)
  - BLOOD ALKALINE PHOSPHATASE INCREASED [None]
